FAERS Safety Report 6408258-4 (Version None)
Quarter: 2009Q4

REPORT INFORMATION
  Report Type: 
  Country: None (occurrence: None)
  Receive Date: 20091021
  Receipt Date: 20091009
  Transmission Date: 20100525
  Serious: Yes (Hospitalization, Other)
  Sender: FDA-Public Use
  Company Number: PL-PFIZER INC-2009260964

PATIENT

DRUGS (1)
  1. ZELDOX [Suspect]

REACTIONS (3)
  - MENTAL STATUS CHANGES [None]
  - PERONEAL NERVE PALSY [None]
  - THROMBOPHLEBITIS [None]
